FAERS Safety Report 21172585 (Version 1)
Quarter: 2022Q3

REPORT INFORMATION
  Report Type: Spontaneous
  Country: US (occurrence: None)
  Receive Date: 20220803
  Receipt Date: 20220803
  Transmission Date: 20221026
  Serious: Yes (unspecified)
  Sender: FDA-Public Use
  Company Number: None

PATIENT
  Age: 55 Year
  Sex: Female
  Weight: 68.04 kg

DRUGS (4)
  1. RECLAST [Suspect]
     Active Substance: ZOLEDRONIC ACID
  2. CALCIUM [Concomitant]
  3. VITAMIN D [Concomitant]
     Active Substance: VITAMIN D NOS
  4. METAMUCIL [Concomitant]

REACTIONS (14)
  - Infusion related reaction [None]
  - Influenza [None]
  - Hyperhidrosis [None]
  - Diarrhoea [None]
  - Nausea [None]
  - Headache [None]
  - Arthralgia [None]
  - Pain in extremity [None]
  - Osteoarthritis [None]
  - Musculoskeletal disorder [None]
  - Arthralgia [None]
  - Pain [None]
  - Gait disturbance [None]
  - Joint lock [None]

NARRATIVE: CASE EVENT DATE: 20220801
